FAERS Safety Report 19508060 (Version 1)
Quarter: 2021Q3

REPORT INFORMATION
  Report Type: Spontaneous
  Country: FR (occurrence: FR)
  Receive Date: 20210708
  Receipt Date: 20210708
  Transmission Date: 20211014
  Serious: Yes (Other)
  Sender: FDA-Public Use
  Company Number: FR-PFIZER INC-2021803015

PATIENT
  Age: 34 Year
  Sex: Female

DRUGS (3)
  1. PLEGRIDY [Suspect]
     Active Substance: PEGINTERFERON BETA-1A
     Indication: MULTIPLE SCLEROSIS
     Dosage: 1 DOSAGE FORM, FREQ: 2 WEEK
     Route: 065
     Dates: start: 20200623, end: 20200822
  2. FLUVERMAL [Suspect]
     Active Substance: FLUBENDAZOLE
     Indication: INFECTION PARASITIC
     Dosage: 2 TABLETS
     Route: 048
     Dates: start: 20200817, end: 20200904
  3. EFFEXOR LP [Suspect]
     Active Substance: VENLAFAXINE HYDROCHLORIDE
     Indication: MENTAL DISORDER
     Dosage: UNK
     Route: 048

REACTIONS (1)
  - Hepatic cytolysis [Recovered/Resolved]

NARRATIVE: CASE EVENT DATE: 20200822
